FAERS Safety Report 5780836-5 (Version None)
Quarter: 2008Q2

REPORT INFORMATION
  Report Type: 
  Country: None (occurrence: None)
  Receive Date: 20080620
  Receipt Date: 20080610
  Transmission Date: 20081010
  Serious: Yes (Other)
  Sender: FDA-Public Use
  Company Number: DE-PFIZER INC-2008048806

PATIENT
  Age: 46 Year
  Sex: Female

DRUGS (3)
  1. CELEBREX [Suspect]
     Route: 048
     Dates: start: 20080527, end: 20080528
  2. FALITHROM [Concomitant]
  3. CYMBALTA [Concomitant]

REACTIONS (2)
  - HYPERSENSITIVITY [None]
  - RASH PUSTULAR [None]
